FAERS Safety Report 7246717-5 (Version None)
Quarter: 2011Q1

REPORT INFORMATION
  Report Type: 
  Country: None (occurrence: None)
  Receive Date: 20110127
  Receipt Date: 20110119
  Transmission Date: 20110831
  Serious: Yes (Hospitalization)
  Sender: FDA-Public Use
  Company Number: JP-AMGEN-JPNSP2010006200

PATIENT
  Age: 71 Year
  Sex: Male
  Weight: 63 kg

DRUGS (11)
  1. ENBREL [Suspect]
     Indication: RHEUMATOID ARTHRITIS
     Dosage: 25 MG, WEEKLY
     Route: 058
     Dates: start: 20090615, end: 20101018
  2. HUMALOG [Suspect]
     Indication: DIABETES MELLITUS
     Dosage: 2 DF, 1X/DAY
  3. ITRIZOLE [Concomitant]
     Indication: PROPHYLAXIS
     Dosage: 50 MG, BID
     Route: 048
  4. PREDNISOLONE [Concomitant]
     Indication: RHEUMATOID ARTHRITIS
     Dosage: 2 MG, 1X/DAY
     Route: 048
  5. URSO 250 [Concomitant]
     Indication: CHOLELITHIASIS
     Dosage: 100 MG, 3X/DAY
     Route: 048
  6. GASTER [Concomitant]
     Indication: GASTRITIS
     Dosage: 10 MG, 2X/DAY
     Route: 048
  7. MUCODYNE [Concomitant]
     Indication: BRONCHITIS CHRONIC
     Dosage: 500 MG, 3X/DAY
     Route: 048
  8. ALENDRONATE SODIUM [Concomitant]
     Indication: OSTEOPOROSIS
     Dosage: 35 MG, QD
     Route: 048
  9. LOXONIN [Concomitant]
     Indication: RHEUMATOID ARTHRITIS
     Dosage: 60 MG, 2X/DAY
     Route: 048
  10. BAKTAR [Concomitant]
     Indication: PROPHYLAXIS
     Dosage: 1 TABELT / DAILY
     Route: 048
     Dates: start: 20090601
  11. BAKTAR [Concomitant]

REACTIONS (2)
  - RHEUMATOID ARTHRITIS [None]
  - PNEUMONIA [None]
